FAERS Safety Report 10944206 (Version 1)
Quarter: 2015Q1

REPORT INFORMATION
  Report Type: Spontaneous
  Country: FR (occurrence: FR)
  Receive Date: 20150323
  Receipt Date: 20150323
  Transmission Date: 20150721
  Serious: Yes (Other)
  Sender: FDA-Public Use
  Company Number: FR-UCBSA-2014019266

PATIENT
  Age: 12 Year
  Sex: Female

DRUGS (1)
  1. KEPPRA [Suspect]
     Active Substance: LEVETIRACETAM
     Indication: PARTIAL SEIZURES
     Dosage: 25 MG/KG, ONCE DAILY (QD)
     Route: 048
     Dates: start: 201202, end: 201409

REACTIONS (1)
  - Major depression [Recovering/Resolving]

NARRATIVE: CASE EVENT DATE: 201305
